FAERS Safety Report 5460354-4 (Version None)
Quarter: 2007Q3

REPORT INFORMATION
  Report Type: 
  Country: None (occurrence: None)
  Receive Date: 20070919
  Receipt Date: 20070717
  Transmission Date: 20080115
  Serious: Yes (Other)
  Sender: FDA-Public Use
  Company Number: US-ASTRAZENECA-2007UW15210

PATIENT
  Age: 36 Year
  Sex: Female

DRUGS (8)
  1. SEROQUEL [Suspect]
     Indication: MAJOR DEPRESSION
     Route: 048
     Dates: start: 20070601, end: 20070604
  2. SEROQUEL [Suspect]
     Indication: INSOMNIA
     Route: 048
     Dates: start: 20070601, end: 20070604
  3. SEROQUEL [Suspect]
     Route: 048
     Dates: start: 20070601, end: 20070601
  4. SEROQUEL [Suspect]
     Route: 048
     Dates: start: 20070601, end: 20070601
  5. SEROQUEL [Suspect]
     Route: 048
     Dates: start: 20070626
  6. SEROQUEL [Suspect]
     Route: 048
     Dates: start: 20070626
  7. FLUOXETINE [Concomitant]
     Indication: DEPRESSION
     Route: 048
     Dates: start: 20050101
  8. LORAZEPAM [Concomitant]
     Indication: ANXIETY
     Route: 048

REACTIONS (2)
  - PALPITATIONS [None]
  - PHARMACEUTICAL PRODUCT COMPLAINT [None]
